FAERS Safety Report 16226191 (Version 2)
Quarter: 2025Q4

REPORT INFORMATION
  Report Type: Spontaneous
  Country: GB (occurrence: GB)
  Receive Date: 20190423
  Receipt Date: 20251226
  Transmission Date: 20260118
  Serious: Yes (Other)
  Sender: AUROBINDO
  Company Number: GB-AUROBINDO-AUR-APL-2019-021326

PATIENT
  Age: 50 Year
  Sex: Female
  Weight: 70 kg

DRUGS (1)
  1. PRAVASTATIN [Suspect]
     Active Substance: PRAVASTATIN
     Indication: Cerebrovascular accident prophylaxis
     Dosage: 10 MILLIGRAM
     Route: 061
     Dates: start: 20181120, end: 20190202

REACTIONS (4)
  - Peripheral coldness [Recovering/Resolving]
  - Hypertension [Recovering/Resolving]
  - Chills [Recovering/Resolving]
  - Palpitations [Recovering/Resolving]
